FAERS Safety Report 12115961 (Version 2)
Quarter: 2016Q2

REPORT INFORMATION
  Report Type: Spontaneous
  Country: US (occurrence: US)
  Receive Date: 20160225
  Receipt Date: 20160425
  Transmission Date: 20160815
  Serious: No
  Sender: FDA-Public Use
  Company Number: US-APOTEX-2016AP005239

PATIENT
  Age: 55 Year
  Sex: Male

DRUGS (4)
  1. PRAZOSIN [Concomitant]
     Active Substance: PRAZOSIN
     Indication: AGITATION
     Dosage: 1 MG, BID
     Route: 048
     Dates: start: 2012
  2. HALOPERIDOL. [Suspect]
     Active Substance: HALOPERIDOL
     Indication: AGITATION
     Dosage: 2 MG, Q.12H AS NEEDED
     Route: 042
     Dates: start: 2012
  3. RISPERIDONE. [Suspect]
     Active Substance: RISPERIDONE
     Indication: AGITATION
     Dosage: 0.25 MG, Q.H.S. AT BEDTIME
     Route: 048
     Dates: start: 2012
  4. HALOPERIDOL. [Suspect]
     Active Substance: HALOPERIDOL
     Indication: AGITATION
     Dosage: 5 MG, Q.H., AS NEEDED
     Route: 048
     Dates: start: 2012

REACTIONS (3)
  - Muscle rigidity [Recovering/Resolving]
  - Dysphagia [Recovering/Resolving]
  - Cogwheel rigidity [Unknown]
